FAERS Safety Report 8112197-0 (Version None)
Quarter: 2012Q1

REPORT INFORMATION
  Report Type: 
  Country: None (occurrence: None)
  Receive Date: 20120203
  Receipt Date: 20120127
  Transmission Date: 20120608
  Serious: No
  Sender: FDA-Public Use
  Company Number: US-B.I. PHARMACEUTICALS,INC./RIDGEFIELD-2012-BP-00979BP

PATIENT
  Sex: Female

DRUGS (12)
  1. NASACORT [Concomitant]
     Indication: SEASONAL ALLERGY
  2. COMBIVENT [Concomitant]
     Indication: ASTHMA
     Route: 055
  3. PEPCID AC [Concomitant]
     Indication: GASTROOESOPHAGEAL REFLUX DISEASE
     Route: 048
  4. METFORMIN HCL [Concomitant]
     Indication: TYPE 2 DIABETES MELLITUS
     Dosage: 2000 MG
     Route: 048
  5. SYMBICORT [Concomitant]
     Indication: ASTHMA
     Route: 055
  6. GLIPIZIDE [Concomitant]
     Indication: TYPE 2 DIABETES MELLITUS
     Dosage: 30 MG
     Route: 048
  7. SINGULAIR [Concomitant]
     Indication: ASTHMA
     Dosage: 10 MG
     Route: 048
  8. SPIRIVA [Suspect]
     Indication: CHRONIC OBSTRUCTIVE PULMONARY DISEASE
     Dosage: 18 MCG
     Route: 055
     Dates: start: 20110401
  9. COZAAR [Concomitant]
     Indication: HYPERTENSION
     Dosage: 100 MG
     Route: 048
  10. PREMARIN [Concomitant]
     Indication: SUPPLEMENTATION THERAPY
     Route: 061
  11. ALBUTEROL [Concomitant]
     Indication: ASTHMA
     Route: 055
  12. PRILOSEC [Concomitant]
     Indication: GASTROOESOPHAGEAL REFLUX DISEASE
     Dosage: 40 MG
     Route: 048

REACTIONS (1)
  - BRONCHITIS [None]
